FAERS Safety Report 18555175 (Version 1)
Quarter: 2020Q4

REPORT INFORMATION
  Report Type: Spontaneous
  Country: US (occurrence: US)
  Receive Date: 20201127
  Receipt Date: 20201127
  Transmission Date: 20210114
  Serious: Yes (Other)
  Sender: FDA-Public Use
  Company Number: US-009507513-2011USA015312

PATIENT
  Age: 56 Year
  Sex: Female
  Weight: 99.3 kg

DRUGS (2)
  1. PRINIVIL [Suspect]
     Active Substance: LISINOPRIL
     Route: 048
  2. NEXIUM [Suspect]
     Active Substance: ESOMEPRAZOLE MAGNESIUM
     Indication: GASTROOESOPHAGEAL REFLUX DISEASE
     Dosage: 40 MILLIGRAM, QD
     Route: 048

REACTIONS (19)
  - Hypertriglyceridaemia [Unknown]
  - Low density lipoprotein increased [Unknown]
  - Insomnia [Unknown]
  - Dysphonia [Unknown]
  - Headache [Unknown]
  - Haemorrhoidal haemorrhage [Unknown]
  - Adjustment disorder with depressed mood [Unknown]
  - Product dose omission issue [Unknown]
  - Weight increased [Unknown]
  - Feeding disorder [Unknown]
  - Hypertension [Unknown]
  - Hypothyroidism [Unknown]
  - Stress [Unknown]
  - Intervertebral disc protrusion [Unknown]
  - Type 2 diabetes mellitus [Unknown]
  - Haemorrhoids [Unknown]
  - Abdominal pain upper [Unknown]
  - Back pain [Unknown]
  - Constipation [Unknown]
